FAERS Safety Report 11537733 (Version 1)
Quarter: 2015Q3

REPORT INFORMATION
  Report Type: Spontaneous
  Country: AU (occurrence: AU)
  Receive Date: 20150922
  Receipt Date: 20150922
  Transmission Date: 20151125
  Serious: Yes (Life-Threatening)
  Sender: FDA-Public Use
  Company Number: AU-HQ SPECIALTY-AU-2015INT000538

PATIENT
  Age: 2 Year
  Sex: Male

DRUGS (5)
  1. CYCLOPHOSPHAMIDE. [Suspect]
     Active Substance: CYCLOPHOSPHAMIDE
     Indication: METASTASES TO EYE
     Dosage: UNK
  2. CISPLATIN. [Suspect]
     Active Substance: CISPLATIN
     Indication: METASTASES TO EYE
     Dosage: UNK
  3. ETOPOSIDE                          /00511902/ [Suspect]
     Active Substance: ETOPOSIDE
     Indication: METASTASES TO EYE
     Dosage: UNK
  4. VINCRISTINE [Suspect]
     Active Substance: VINCRISTINE
     Indication: METASTASES TO EYE
     Dosage: UNK
  5. RADIOTHERAPY [Suspect]
     Active Substance: RADIATION THERAPY
     Indication: METASTASES TO EYE
     Dosage: UNK

REACTIONS (1)
  - Pancytopenia [Unknown]
